FAERS Safety Report 5987384-8 (Version None)
Quarter: 2008Q4

REPORT INFORMATION
  Report Type: 
  Country: None (occurrence: None)
  Receive Date: 20081209
  Receipt Date: 20081205
  Transmission Date: 20090506
  Serious: Yes (Death, Other)
  Sender: FDA-Public Use
  Company Number: PHHY2008CR31040

PATIENT
  Age: 82 Year
  Sex: Female

DRUGS (2)
  1. EXELON [Suspect]
     Indication: DEMENTIA ALZHEIMER'S TYPE
     Dosage: 1.5 MG
  2. CLONAZEPAM [Concomitant]
     Dosage: 40 DROPS
     Route: 048

REACTIONS (4)
  - DEATH [None]
  - HEPATIC FAILURE [None]
  - RENAL FAILURE [None]
  - RESTLESSNESS [None]
